FAERS Safety Report 10064255 (Version 1)
Quarter: 2013Q4

REPORT INFORMATION
  Report Type: Spontaneous
  Country: CA (occurrence: None)
  Receive Date: 20131121
  Receipt Date: 20131121
  Transmission Date: 20140711
  Serious: Yes (Other)
  Sender: FDA-Public Use
  Company Number: 2013-00017

PATIENT
  Sex: 0

DRUGS (2)
  1. TRIDURAL [Suspect]
  2. TRAMADOL HYDROCHLORIDE [Suspect]

REACTIONS (1)
  - Hypoglycaemia [None]
